FAERS Safety Report 7674847-2 (Version None)
Quarter: 2011Q3

REPORT INFORMATION
  Report Type: 
  Country: None (occurrence: None)
  Receive Date: 20110810
  Receipt Date: 20110804
  Transmission Date: 20111222
  Serious: Yes (Other)
  Sender: FDA-Public Use
  Company Number: ES-BAYER-2011-068617

PATIENT
  Age: 69 Year
  Sex: Female

DRUGS (5)
  1. IRBESARTAN AND HYDROCHLOROTHIAZIDE [Concomitant]
     Dosage: UNK
     Dates: start: 20061129
  2. LEXATIN [Concomitant]
     Dosage: UNK
     Dates: start: 20080211
  3. OMEPRAZOLE [Concomitant]
     Dosage: UNK
     Dates: start: 20100525
  4. PRAVASTATIN SODIUM [Concomitant]
     Dosage: UNK
     Dates: start: 20091216
  5. MOXIFLOXACIN [Suspect]
     Indication: SINUSITIS
     Dosage: 400 MG, HS
     Route: 048
     Dates: start: 20110510, end: 20110513

REACTIONS (5)
  - BALANCE DISORDER [None]
  - PARAESTHESIA [None]
  - SINUS TACHYCARDIA [None]
  - DYSARTHRIA [None]
  - DIZZINESS [None]
